FAERS Safety Report 4803892-7 (Version None)
Quarter: 2005Q3

REPORT INFORMATION
  Report Type: 
  Country: None (occurrence: None)
  Receive Date: 20050920
  Receipt Date: 20050622
  Transmission Date: 20060218
  Serious: No
  Sender: FDA-Public Use
  Company Number: US-YAMANOUCHI-YPA20050342

PATIENT
  Age: 84 Year
  Sex: Male
  Weight: 77.1115 kg

DRUGS (6)
  1. VESICARE [Suspect]
     Indication: HYPERTONIC BLADDER
     Dosage: 10 MG QD PO
     Route: 048
     Dates: start: 20050601
  2. DETROL /USA/ [Concomitant]
  3. OXYTROL [Concomitant]
  4. AVAPRO [Concomitant]
  5. NORVASC [Concomitant]
  6. ACTONEL [Concomitant]

REACTIONS (1)
  - CONSTIPATION [None]
